FAERS Safety Report 20591893 (Version 1)
Quarter: 2022Q1

REPORT INFORMATION
  Report Type: Report from Study
  Country: US (occurrence: US)
  Receive Date: 20220314
  Receipt Date: 20220314
  Transmission Date: 20220423
  Serious: Yes (Other)
  Sender: FDA-Public Use
  Company Number: US-SA-2022SA082129

PATIENT
  Age: 86 Year
  Sex: Female

DRUGS (1)
  1. CEMIPLIMAB [Suspect]
     Active Substance: CEMIPLIMAB
     Indication: Squamous cell carcinoma of skin
     Dosage: 2 DRUG INFUSIONS
     Route: 041

REACTIONS (2)
  - Mixed liver injury [Recovered/Resolved]
  - Immune-mediated hepatic disorder [Recovered/Resolved]
